FAERS Safety Report 10453136 (Version 3)
Quarter: 2014Q4

REPORT INFORMATION
  Report Type: Spontaneous
  Country: US (occurrence: US)
  Receive Date: 20140915
  Receipt Date: 20141016
  Transmission Date: 20150528
  Serious: Yes (Hospitalization, Other)
  Sender: FDA-Public Use
  Company Number: US-GLAXOSMITHKLINE-A1088431A

PATIENT
  Age: 92 Year
  Sex: Male

DRUGS (11)
  1. ADVAIR HFA [Suspect]
     Active Substance: FLUTICASONE PROPIONATE\SALMETEROL XINAFOATE
     Dosage: UNK
  2. NEBULIZER [Concomitant]
     Active Substance: UNSPECIFIED INGREDIENT
  3. NIFEDIPINE. [Concomitant]
     Active Substance: NIFEDIPINE
  4. WATER PILL [Concomitant]
     Active Substance: UNSPECIFIED INGREDIENT
  5. ASPIRIN. [Concomitant]
     Active Substance: ASPIRIN
  6. PROVENTIL HFA [Concomitant]
     Active Substance: ALBUTEROL SULFATE
  7. ADVAIR HFA [Suspect]
     Active Substance: FLUTICASONE PROPIONATE\SALMETEROL XINAFOATE
     Indication: DYSPNOEA
     Dosage: 1 PUFF(S), BID
     Route: 055
     Dates: start: 201405, end: 201408
  8. IMDUR [Concomitant]
     Active Substance: ISOSORBIDE MONONITRATE
  9. LISINOPRIL. [Concomitant]
     Active Substance: LISINOPRIL
  10. VITAMINS [Concomitant]
     Active Substance: VITAMINS
  11. PROAIR HFA [Concomitant]
     Active Substance: ALBUTEROL SULFATE

REACTIONS (3)
  - Dyspnoea [Unknown]
  - Myocardial infarction [Recovered/Resolved]
  - Chest discomfort [Recovered/Resolved]

NARRATIVE: CASE EVENT DATE: 201408
